FAERS Safety Report 7023777-8 (Version None)
Quarter: 2010Q4

REPORT INFORMATION
  Report Type: 
  Country: None (occurrence: None)
  Receive Date: 20101001
  Receipt Date: 20100924
  Transmission Date: 20110411
  Serious: Yes (Other)
  Sender: FDA-Public Use
  Company Number: US-ASTRAZENECA-2007UW01729

PATIENT
  Age: 11731 Day
  Sex: Female
  Weight: 116.1 kg

DRUGS (21)
  1. SEROQUEL [Suspect]
     Indication: BIPOLAR DISORDER
     Route: 048
     Dates: start: 19971201, end: 20080101
  2. SEROQUEL [Suspect]
     Indication: SLEEP DISORDER
     Route: 048
     Dates: start: 19971201, end: 20080101
  3. SEROQUEL [Suspect]
     Dosage: 25-300MG
     Route: 048
     Dates: start: 20031120
  4. SEROQUEL [Suspect]
     Dosage: 25-300MG
     Route: 048
     Dates: start: 20031120
  5. SEROQUEL [Suspect]
     Route: 048
     Dates: start: 20040615
  6. SEROQUEL [Suspect]
     Route: 048
     Dates: start: 20040615
  7. SEROQUEL [Suspect]
     Route: 048
     Dates: start: 20080601
  8. SEROQUEL [Suspect]
     Route: 048
     Dates: start: 20080601
  9. PROZAC [Concomitant]
     Dosage: 20-40MG
     Dates: start: 20060101
  10. NEXIUM [Concomitant]
  11. ABILIFY [Concomitant]
  12. LIPITOR [Concomitant]
     Dosage: TWO TIMES A DAY
  13. METOPROLOL TARTRATE [Concomitant]
  14. LISINOPRIL [Concomitant]
  15. ASPIRIN [Concomitant]
  16. KEPPRA [Concomitant]
     Dosage: TWO TIMES A DAY
  17. HUMULIN 70/30 [Concomitant]
     Dosage: 50U, UNKNOWN
  18. TEGRETOL [Concomitant]
     Dosage: TWO TIMES A DAY
  19. ZYPREXA [Concomitant]
     Dates: start: 19980507
  20. ZYPREXA [Concomitant]
     Dates: start: 20050101
  21. DEPAKOTE [Concomitant]
     Dosage: 250-1500MG
     Dates: start: 19980507, end: 20070626

REACTIONS (14)
  - ARTERIOSCLEROSIS CORONARY ARTERY [None]
  - CARDIAC FAILURE CONGESTIVE [None]
  - CARDIOMEGALY [None]
  - CARDIOMYOPATHY [None]
  - CONVULSION [None]
  - CORONARY ARTERY DISEASE [None]
  - DIABETES MELLITUS [None]
  - DIABETES MELLITUS INADEQUATE CONTROL [None]
  - DIABETIC KETOACIDOSIS [None]
  - HYPERTENSIVE HEART DISEASE [None]
  - LEFT VENTRICULAR FAILURE [None]
  - MALAISE [None]
  - TYPE 1 DIABETES MELLITUS [None]
  - TYPE 2 DIABETES MELLITUS [None]
